FAERS Safety Report 8314997-0 (Version None)
Quarter: 2012Q2

REPORT INFORMATION
  Report Type: 
  Country: None (occurrence: None)
  Receive Date: 20120426
  Receipt Date: 20120126
  Transmission Date: 20120825
  Serious: No
  Sender: FDA-Public Use
  Company Number: US-MUTUAL PHARMACEUTICAL COMPANY, INC.-CLCY20120027

PATIENT
  Sex: Female
  Weight: 26.786 kg

DRUGS (1)
  1. COLCRYS [Suspect]
     Indication: FAMILIAL MEDITERRANEAN FEVER
     Route: 048
     Dates: start: 20110901, end: 20120101

REACTIONS (5)
  - DRUG INEFFECTIVE [None]
  - ABDOMINAL PAIN [None]
  - HEADACHE [None]
  - VOMITING [None]
  - PAIN IN EXTREMITY [None]
